FAERS Safety Report 10004293 (Version 1)
Quarter: 2014Q1

REPORT INFORMATION
  Report Type: Report from Study
  Country: US (occurrence: US)
  Receive Date: 20140312
  Receipt Date: 20140312
  Transmission Date: 20141002
  Serious: Yes (Hospitalization)
  Sender: FDA-Public Use
  Company Number: US-ALEXION-A201202952

PATIENT
  Sex: Female

DRUGS (1)
  1. SOLIRIS [Suspect]
     Indication: PAROXYSMAL NOCTURNAL HAEMOGLOBINURIA
     Dosage: UNK
     Route: 042

REACTIONS (11)
  - Influenza like illness [Unknown]
  - Dysphagia [Unknown]
  - Dyspnoea [Unknown]
  - Immune thrombocytopenic purpura [Unknown]
  - Haemoglobinuria [Recovered/Resolved]
  - Pain [Recovered/Resolved]
  - Nausea [Unknown]
  - Chills [Unknown]
  - Jaundice [Recovered/Resolved]
  - Hypotension [Recovered/Resolved]
  - Fatigue [Unknown]
